FAERS Safety Report 17686386 (Version 1)
Quarter: 2020Q2

REPORT INFORMATION
  Report Type: Report from Study
  Country: US (occurrence: US)
  Receive Date: 20200420
  Receipt Date: 20200420
  Transmission Date: 20200714
  Serious: Yes (Hospitalization)
  Sender: FDA-Public Use
  Company Number: US-ACTELION-A-NJ2020-204207

PATIENT
  Age: 44 Year
  Sex: Female

DRUGS (3)
  1. OPSUMIT [Suspect]
     Active Substance: MACITENTAN
     Indication: PULMONARY ARTERIAL HYPERTENSION
     Dosage: 10 MG, QD
     Route: 048
  2. ADVIL [Concomitant]
     Active Substance: IBUPROFEN
     Indication: HEADACHE
  3. WARFARIN [Suspect]
     Active Substance: WARFARIN
     Indication: HEART DISEASE CONGENITAL
     Route: 065

REACTIONS (6)
  - Vomiting [Unknown]
  - Nausea [Unknown]
  - Prothrombin time prolonged [Unknown]
  - Subarachnoid haemorrhage [Unknown]
  - Increased tendency to bruise [Unknown]
  - Headache [Unknown]

NARRATIVE: CASE EVENT DATE: 20200308
